FAERS Safety Report 19009256 (Version 5)
Quarter: 2021Q3

REPORT INFORMATION
  Report Type: Report from Study
  Country: AT (occurrence: AT)
  Receive Date: 20210316
  Receipt Date: 20210810
  Transmission Date: 20211014
  Serious: Yes (Hospitalization)
  Sender: FDA-Public Use
  Company Number: AT-ROCHE-2785833

PATIENT
  Age: 54 Year
  Sex: Male
  Weight: 98 kg

DRUGS (13)
  1. ZARZIO [Concomitant]
     Active Substance: FILGRASTIM
     Route: 058
     Dates: start: 20210222, end: 20210226
  2. AMLODIPIN [Concomitant]
     Active Substance: AMLODIPINE BESYLATE
     Route: 048
     Dates: start: 202102
  3. ZARZIO [Concomitant]
     Active Substance: FILGRASTIM
     Route: 058
     Dates: start: 20210321, end: 20210325
  4. PASPERTIN [Concomitant]
     Route: 048
     Dates: start: 202101
  5. CARVEDILOL. [Concomitant]
     Active Substance: CARVEDILOL
     Dates: start: 202102
  6. POLATUZUMAB VEDOTIN. [Suspect]
     Active Substance: POLATUZUMAB VEDOTIN
     Indication: B-CELL LYMPHOMA
     Dosage: DOSE LAST STUDY DRUG ADMINISTERED ON 18/FEB/2021 PRIOR SAE WAS 191 MG
     Route: 042
     Dates: start: 20210107
  7. RITUXIMAB. [Suspect]
     Active Substance: RITUXIMAB
     Indication: B-CELL LYMPHOMA
     Dosage: DOSE LAST STUDY DRUG ADMINISTERED ON 18/FEB/2021 PRIOR SAE IS 854 MG
     Route: 042
     Dates: start: 20210107
  8. CYCLOPHOSPHAMIDE. [Suspect]
     Active Substance: CYCLOPHOSPHAMIDE
     Indication: B-CELL LYMPHOMA
     Dosage: DOSE LAST STUDY DRUG ADMINISTERED ON 18/FEB/2021 PRIOR SAE IS 1708 MG
     Route: 042
     Dates: start: 20210107
  9. ZARZIO [Concomitant]
     Active Substance: FILGRASTIM
     Route: 058
     Dates: start: 20210201, end: 20210205
  10. ZOFRAN [Concomitant]
     Active Substance: ONDANSETRON HYDROCHLORIDE
     Route: 048
     Dates: start: 202101
  11. DOXORUBICIN [Suspect]
     Active Substance: DOXORUBICIN
     Indication: B-CELL LYMPHOMA
     Dosage: DOSE LAST STUDY DRUG ADMINISTERED ON 18/FEB/2021 PRIOR SAE IS 114 MG
     Route: 042
     Dates: start: 20210107
  12. PREDNISONE. [Suspect]
     Active Substance: PREDNISONE
     Indication: B-CELL LYMPHOMA
     Dosage: DOSE LAST STUDY DRUG ADMINISTERED ON 22/FEB/2021 PRIOR SAE IS 100 MG
     Route: 048
     Dates: start: 20210107
  13. KCL RETARD SLOW K [Concomitant]
     Route: 048
     Dates: start: 202101

REACTIONS (1)
  - Infection [Recovered/Resolved]

NARRATIVE: CASE EVENT DATE: 20210305
